FAERS Safety Report 6032607-2 (Version None)
Quarter: 2009Q1

REPORT INFORMATION
  Report Type: 
  Country: None (occurrence: None)
  Receive Date: 20090109
  Receipt Date: 20090106
  Transmission Date: 20090719
  Serious: Yes (Hospitalization, Other)
  Sender: FDA-Public Use
  Company Number: PHHY2008JP25966

PATIENT
  Sex: Female
  Weight: 54 kg

DRUGS (4)
  1. TEGRETOL [Suspect]
     Indication: OCCIPITAL NEURALGIA
     Dosage: 100 MG, QD
     Route: 048
     Dates: start: 20080830, end: 20081020
  2. TERNELIN [Suspect]
     Indication: NECK PAIN
     Dosage: 1 MG, BID
     Route: 048
     Dates: start: 20080830, end: 20081020
  3. CEPHADOL [Suspect]
     Indication: VERTIGO
     Dosage: 25 MG, BID
     Route: 048
     Dates: start: 20080830, end: 20081020
  4. GRANDAXIN [Concomitant]
     Dosage: UNK
     Route: 048
     Dates: start: 20080901, end: 20081020

REACTIONS (10)
  - CHOLELITHIASIS [None]
  - CHOLELITHOTOMY [None]
  - GAMMA-GLUTAMYLTRANSFERASE INCREASED [None]
  - HEPATIC FUNCTION ABNORMAL [None]
  - LYMPHOCYTE STIMULATION TEST POSITIVE [None]
  - MUCOSAL INFLAMMATION [None]
  - OEDEMA [None]
  - PYREXIA [None]
  - RASH GENERALISED [None]
  - STOMATITIS [None]
